FAERS Safety Report 14041945 (Version 3)
Quarter: 2018Q3

REPORT INFORMATION
  Report Type: Report from Study
  Country: US (occurrence: US)
  Receive Date: 20171004
  Receipt Date: 20180928
  Transmission Date: 20181010
  Serious: No
  Sender: FDA-Public Use
  Company Number: US-AMGEN-USASL2016151699

PATIENT
  Age: 94 Year
  Sex: Female

DRUGS (2)
  1. PROLIA [Suspect]
     Active Substance: DENOSUMAB
     Indication: OSTEOPOROSIS POSTMENOPAUSAL
     Dosage: UNK, Q6MO
     Route: 065
     Dates: start: 2014
  2. VITAMIN B12 [Concomitant]
     Active Substance: CYANOCOBALAMIN
     Dosage: UNK, RECENT SHOT ON 16/NOV/2017

REACTIONS (15)
  - Skin exfoliation [Unknown]
  - Pain in jaw [Unknown]
  - Erythema [Unknown]
  - Mobility decreased [Unknown]
  - Feeling hot [Unknown]
  - Fatigue [Unknown]
  - Inappropriate schedule of drug administration [Unknown]
  - Skin atrophy [Unknown]
  - Pain of skin [Unknown]
  - Back pain [Not Recovered/Not Resolved]
  - Gait disturbance [Unknown]
  - Epicondylitis [Not Recovered/Not Resolved]
  - Discomfort [Unknown]
  - Joint swelling [Unknown]
  - Anxiety [Unknown]

NARRATIVE: CASE EVENT DATE: 2016
